FAERS Safety Report 9342006 (Version 1)
Quarter: 2013Q2

REPORT INFORMATION
  Report Type: Spontaneous
  Country: CA (occurrence: None)
  Receive Date: 20130606
  Receipt Date: 20130606
  Transmission Date: 20140414
  Serious: Yes (Life-Threatening, Hospitalization)
  Sender: FDA-Public Use
  Company Number: 2013/116

PATIENT
  Age: 68 Year
  Sex: Male
  Weight: 80 kg

DRUGS (2)
  1. AMLODIPINE [Suspect]
     Route: 048
  2. METFORMIN 500 MG [Suspect]
     Route: 048

REACTIONS (9)
  - Suicide attempt [None]
  - Haemodynamic instability [None]
  - Pallor [None]
  - Hyperhidrosis [None]
  - Blood glucose increased [None]
  - Hypotension [None]
  - Shock [None]
  - Acidosis [None]
  - Incorrect dose administered [None]
